FAERS Safety Report 8917368 (Version 3)
Quarter: 2013Q2

REPORT INFORMATION
  Report Type: Spontaneous
  Country: US (occurrence: US)
  Receive Date: 20121119
  Receipt Date: 20130429
  Transmission Date: 20140414
  Serious: Yes (Hospitalization)
  Sender: FDA-Public Use
  Company Number: US-B.I. PHARMACEUTICALS,INC./RIDGEFIELD-2012-BI-00105BP

PATIENT
  Age: 78 Year
  Sex: Female
  Weight: 68.04 kg

DRUGS (20)
  1. PRADAXA [Suspect]
     Indication: ANTICOAGULANT THERAPY
     Dosage: 300 MG
     Route: 048
     Dates: start: 20110706, end: 20111201
  2. ADVAIR [Concomitant]
     Dosage: 1 PUF
     Dates: start: 2005
  3. FERROUS SULFATE [Concomitant]
     Dosage: 975 MG
     Dates: start: 2005
  4. ACETAMINOPHEN/CODEINE [Concomitant]
     Dates: start: 2005
  5. PROAIR HFA [Concomitant]
     Dates: start: 2005
  6. SIMVASTATIN [Concomitant]
     Dosage: 20 MG
     Dates: start: 2005
  7. ESTRADERM [Concomitant]
     Dates: start: 2005
  8. KETOROLAC [Concomitant]
     Dates: start: 2005
  9. PREDNISONE [Concomitant]
     Dates: start: 2005
  10. CITALOPRAM [Concomitant]
     Dosage: 10 MG
     Dates: start: 2005
  11. MELOXICAM [Concomitant]
     Dates: start: 2007
  12. PROMETHAZINE [Concomitant]
     Dates: start: 2005
  13. LEVOTHYROXINE [Concomitant]
     Dosage: 25 MCG
     Dates: start: 2005
  14. SMZ/TMP [Concomitant]
     Dates: start: 2007
  15. NYSTATIN [Concomitant]
     Dates: start: 2007
  16. METRONIDAZOLE [Concomitant]
     Dates: start: 2007
  17. LORTAB [Concomitant]
     Indication: PAIN
  18. POTASSIUM [Concomitant]
     Dosage: 20 MEQ
     Route: 048
  19. LASIX [Concomitant]
     Dosage: 40 MG
     Route: 048
  20. BISOPROLOL FUMARATE [Concomitant]
     Dosage: 5 MG

REACTIONS (4)
  - Pleural effusion [Unknown]
  - Lobar pneumonia [Unknown]
  - Empyema [Unknown]
  - Haemothorax [Unknown]
